FAERS Safety Report 4550163-2 (Version None)
Quarter: 2005Q1

REPORT INFORMATION
  Report Type: 
  Country: None (occurrence: None)
  Receive Date: 20050112
  Receipt Date: 20041222
  Transmission Date: 20050727
  Serious: Yes (Hospitalization)
  Sender: FDA-Public Use
  Company Number: KR-ROCHE-389876

PATIENT
  Sex: Female

DRUGS (2)
  1. LARIAM [Suspect]
     Indication: MALARIA PROPHYLAXIS
     Dosage: DOSAGE REGIMEN: 1T/WEEK
     Route: 048
     Dates: start: 20040515, end: 20041015
  2. LARIAM [Suspect]
     Dosage: DOSAGE REGIMEN: 1T/WEEK
     Route: 048
     Dates: start: 20041115

REACTIONS (2)
  - HEPATITIS ACUTE [None]
  - PHARMACEUTICAL PRODUCT COMPLAINT [None]
